FAERS Safety Report 8943831 (Version 1)
Quarter: 2012Q4

REPORT INFORMATION
  Report Type: 
  Country: FR (occurrence: FR)
  Receive Date: 20121204
  Receipt Date: 20121204
  Transmission Date: 20130627
  Serious: Yes (Hospitalization, Other)
  Sender: FDA-Public Use
  Company Number: PHHY2012FR104210

PATIENT
  Age: 40 Year
  Sex: Female

DRUGS (2)
  1. TASIGNA [Suspect]
     Indication: CHRONIC MYELOID LEUKAEMIA
     Dosage: 800 mg, daily
     Route: 048
     Dates: start: 20120913, end: 20121026
  2. TASIGNA [Suspect]
     Dosage: 400 mg, daily
     Route: 048

REACTIONS (8)
  - Generalised oedema [Recovered/Resolved]
  - Oedema peripheral [Unknown]
  - Respiratory distress [Unknown]
  - Weight increased [Unknown]
  - Pleural effusion [Recovered/Resolved]
  - Pericardial effusion [Recovering/Resolving]
  - Localised intraabdominal fluid collection [Recovered/Resolved]
  - Hypokalaemia [Recovered/Resolved]
